FAERS Safety Report 15244096 (Version 5)
Quarter: 2018Q4

REPORT INFORMATION
  Report Type: Report from Study
  Country: DE (occurrence: DE)
  Receive Date: 20180806
  Receipt Date: 20181031
  Transmission Date: 20190204
  Serious: Yes (Death, Hospitalization)
  Sender: FDA-Public Use
  Company Number: DE-PFIZER INC-2018308510

PATIENT
  Age: 64 Year
  Sex: Female
  Weight: 162 kg

DRUGS (3)
  1. PANTOPRAZOL [Concomitant]
     Active Substance: PANTOPRAZOLE SODIUM
     Indication: PROPHYLAXIS AGAINST GASTROINTESTINAL ULCER
     Dosage: 40 MG, DAILY
     Route: 048
     Dates: start: 201712, end: 20180729
  2. NOVALGIN (METAMIZOLE SODIUM) [Concomitant]
     Active Substance: METAMIZOLE SODIUM
     Indication: ABDOMINAL PAIN UPPER
     Dosage: 1000 MG, DAILY
     Dates: end: 20180729
  3. PALBOCICLIB [Suspect]
     Active Substance: PALBOCICLIB
     Indication: CHORDOMA
     Dosage: 125 MG, CYCLIC ( DAYS 1-21 IN A 28-DAY CYCLE)
     Route: 048
     Dates: start: 20180712, end: 20180730

REACTIONS (1)
  - Neoplasm progression [Fatal]

NARRATIVE: CASE EVENT DATE: 20180729
